FAERS Safety Report 16125928 (Version 1)
Quarter: 2019Q1

REPORT INFORMATION
  Report Type: Spontaneous
  Country: TR (occurrence: TR)
  Receive Date: 20190328
  Receipt Date: 20190328
  Transmission Date: 20190418
  Serious: Yes (Hospitalization)
  Sender: FDA-Public Use
  Company Number: TR-SA-2019SA079309

PATIENT
  Sex: Female
  Weight: 2.84 kg

DRUGS (1)
  1. CLEXANE [Suspect]
     Active Substance: ENOXAPARIN SODIUM
     Indication: MATERNAL EXPOSURE TIMING UNSPECIFIED
     Dosage: 1 DF, QD
     Route: 064
     Dates: start: 20180617, end: 20190125

REACTIONS (2)
  - Lung infection [Unknown]
  - Foetal exposure during pregnancy [Unknown]
